FAERS Safety Report 4833241-X (Version None)
Quarter: 2005Q4

REPORT INFORMATION
  Report Type: 
  Country: None (occurrence: None)
  Receive Date: 20051117
  Receipt Date: 20051107
  Transmission Date: 20060501
  Serious: Yes (Other)
  Sender: FDA-Public Use
  Company Number: FR_051107449

PATIENT
  Age: 65 Year
  Sex: Male

DRUGS (8)
  1. PROZAC [Suspect]
     Indication: DEPRESSION
     Dosage: 10 MG/1 DAY
     Dates: start: 20051024
  2. INSULIN RAPID /00030501/ (INSULIN) [Concomitant]
  3. LANTUS [Concomitant]
  4. CAPTOPRIL [Concomitant]
  5. EFFERALGAN (PARACETAMOL) [Concomitant]
  6. IBUPROFEN [Concomitant]
  7. TANAKAN (GINKGO BILOBA EXTRACT) [Concomitant]
  8. DOXIUM (CALCIUM DOBESILATE) [Concomitant]

REACTIONS (2)
  - BLOOD GLUCOSE INCREASED [None]
  - INFLUENZA [None]
